FAERS Safety Report 19453714 (Version 1)
Quarter: 2021Q2

REPORT INFORMATION
  Report Type: Spontaneous
  Country: US (occurrence: US)
  Receive Date: 20210623
  Receipt Date: 20210623
  Transmission Date: 20210717
  Serious: No
  Sender: FDA-Public Use
  Company Number: US-PFIZER INC-2021384829

PATIENT
  Age: 64 Year
  Sex: Female
  Weight: 53.07 kg

DRUGS (1)
  1. LIPITOR [Suspect]
     Active Substance: ATORVASTATIN CALCIUM
     Indication: BLOOD CHOLESTEROL
     Dosage: 10 MG 2?3 TIMES A WEEK
     Dates: start: 2016

REACTIONS (2)
  - Off label use [Unknown]
  - Muscular weakness [Unknown]

NARRATIVE: CASE EVENT DATE: 2016
